FAERS Safety Report 9193039 (Version 1)
Quarter: 2013Q1

REPORT INFORMATION
  Report Type: Spontaneous
  Country: PL (occurrence: PL)
  Receive Date: 20130327
  Receipt Date: 20130327
  Transmission Date: 20140127
  Serious: Yes (Hospitalization)
  Sender: FDA-Public Use
  Company Number: PHHY2013PL028020

PATIENT
  Age: 80 Year
  Sex: Female
  Weight: 72 kg

DRUGS (8)
  1. KETONAL [Suspect]
     Indication: OSTEOARTHRITIS
     Dosage: 300 MG, UNK
     Route: 048
     Dates: start: 201207, end: 20120806
  2. TRITACE [Concomitant]
  3. FUROSEMID [Concomitant]
  4. SPIRONOL [Concomitant]
  5. RISENDROS [Concomitant]
  6. ALFADIOL [Concomitant]
  7. ALTRON FLEX [Concomitant]
  8. KALDYUM [Concomitant]

REACTIONS (3)
  - Oedema peripheral [Not Recovered/Not Resolved]
  - Circulatory collapse [Not Recovered/Not Resolved]
  - Dyspnoea [Not Recovered/Not Resolved]
